FAERS Safety Report 6233848-1 (Version None)
Quarter: 2009Q2

REPORT INFORMATION
  Report Type: 
  Country: None (occurrence: None)
  Receive Date: 20090612
  Receipt Date: 20090612
  Transmission Date: 20091009
  Serious: Yes (Hospitalization)
  Sender: FDA-Public Use
  Company Number: None

PATIENT
  Sex: Female

DRUGS (5)
  1. CRESTOR [Suspect]
     Indication: HYPERLIPIDAEMIA
     Dosage: CRESTOR 40 MG ONCE DAILY AT NIGHT BY MOUTH
     Route: 048
     Dates: start: 20090101, end: 20090609
  2. VITAMIN B COMPLEX CAP [Concomitant]
  3. TOPAMAX [Concomitant]
  4. OMEPRAZOLE [Concomitant]
  5. NORTRIPTYLINE HCL [Concomitant]

REACTIONS (3)
  - MYOPATHY [None]
  - RENAL FAILURE ACUTE [None]
  - RHABDOMYOLYSIS [None]
